FAERS Safety Report 5007512-0 (Version None)
Quarter: 2006Q2

REPORT INFORMATION
  Report Type: 
  Country: None (occurrence: None)
  Receive Date: 20060517
  Receipt Date: 20060508
  Transmission Date: 20061013
  Serious: Yes (Hospitalization)
  Sender: FDA-Public Use
  Company Number: 2006BI005358

PATIENT
  Age: 44 Year
  Sex: Female

DRUGS (5)
  1. AVONEX [Suspect]
     Indication: MULTIPLE SCLEROSIS
     Dosage: 30 UG;QW;IM
     Route: 030
     Dates: start: 20021026
  2. AVONEX [Suspect]
     Indication: MULTIPLE SCLEROSIS
     Dosage: 30 UG;QW;IM
     Route: 030
  3. AMANTIDINE [Concomitant]
  4. OXYBUTYNIN [Concomitant]
  5. DUCOLAX [Concomitant]

REACTIONS (5)
  - ANKLE FRACTURE [None]
  - DYSPNOEA [None]
  - FALL [None]
  - LOWER LIMB FRACTURE [None]
  - OPTIC NEURITIS [None]
